FAERS Safety Report 16667742 (Version 1)
Quarter: 2019Q3

REPORT INFORMATION
  Report Type: Report from Study
  Country: DE (occurrence: DE)
  Receive Date: 20190805
  Receipt Date: 20190805
  Transmission Date: 20191004
  Serious: Yes (Death)
  Sender: FDA-Public Use
  Company Number: DE-PFIZER INC-2019327226

PATIENT
  Age: 33 Year
  Sex: Male

DRUGS (4)
  1. DOXEPIN [Suspect]
     Active Substance: DOXEPIN
     Dosage: UNK
  2. U-47700 [Suspect]
     Active Substance: U-47700
     Dosage: UNK
  3. VENLAFAXINE HCL [Suspect]
     Active Substance: VENLAFAXINE HYDROCHLORIDE
     Dosage: UNK
  4. NORDOXEPIN [Suspect]
     Active Substance: DESMETHYLDOXEPIN
     Dosage: UNK

REACTIONS (3)
  - Toxicity to various agents [Fatal]
  - Pulmonary oedema [Fatal]
  - Intracranial pressure increased [Fatal]
